FAERS Safety Report 21577566 (Version 6)
Quarter: 2023Q2

REPORT INFORMATION
  Report Type: Spontaneous
  Country: CO (occurrence: CO)
  Receive Date: 20221110
  Receipt Date: 20230427
  Transmission Date: 20230722
  Serious: No
  Sender: FDA-Public Use
  Company Number: CO-PFIZER INC-PV202200095539

PATIENT
  Age: 14 Year

DRUGS (3)
  1. GENOTROPIN [Suspect]
     Active Substance: SOMATROPIN
     Indication: Growth hormone deficiency
     Dosage: 1 EVERY DAY, RESTS ON SATURDAY
     Route: 058
     Dates: start: 2020
  2. GENOTROPIN [Suspect]
     Active Substance: SOMATROPIN
     Dosage: 1 DAY OF REST
     Route: 058
  3. GENOTROPIN [Suspect]
     Active Substance: SOMATROPIN
     Dosage: UNK
     Dates: start: 2022

REACTIONS (5)
  - Injection site pain [Unknown]
  - Poor quality device used [Unknown]
  - Device physical property issue [Unknown]
  - Device failure [Unknown]
  - Device mechanical issue [Unknown]
